FAERS Safety Report 21045834 (Version 2)
Quarter: 2022Q3

REPORT INFORMATION
  Report Type: Spontaneous
  Country: FR (occurrence: FR)
  Receive Date: 20220706
  Receipt Date: 20220808
  Transmission Date: 20221027
  Serious: Yes (Disabling)
  Sender: FDA-Public Use
  Company Number: ALC2022FR003067

PATIENT

DRUGS (13)
  1. AZOPT [Suspect]
     Active Substance: BRINZOLAMIDE
     Indication: Glaucoma
     Dosage: TWICE IN THE RIGHT EYE
     Route: 047
  2. DEXAMETHASONE SODIUM PHOSPHATE [Suspect]
     Active Substance: DEXAMETHASONE SODIUM PHOSPHATE
     Indication: Antiinflammatory therapy
     Dosage: TWICE IN THE RIGHT EYE
     Route: 047
  3. HYALURONATE SODIUM [Suspect]
     Active Substance: HYALURONATE SODIUM
     Indication: Product used for unknown indication
     Dosage: UNK
     Route: 065
  4. LATANOPROST [Suspect]
     Active Substance: LATANOPROST
     Indication: Glaucoma
     Dosage: ONCE IN THE RIGHT EYE
     Route: 047
     Dates: start: 202003
  5. ELIQUIS [Concomitant]
     Active Substance: APIXABAN
     Indication: Product used for unknown indication
     Dosage: UNK
     Route: 065
  6. GLICLAZIDE [Concomitant]
     Active Substance: GLICLAZIDE
     Indication: Product used for unknown indication
     Dosage: UNK
     Route: 065
  7. METFORMIN [Concomitant]
     Active Substance: METFORMIN HYDROCHLORIDE
     Indication: Product used for unknown indication
     Dosage: UNK
     Route: 065
  8. KARDEGIC [Concomitant]
     Active Substance: ASPIRIN DL-LYSINE
     Indication: Product used for unknown indication
     Dosage: UNK
     Route: 065
  9. RAMIPRIL [Concomitant]
     Active Substance: RAMIPRIL
     Indication: Product used for unknown indication
     Dosage: UNK
     Route: 065
  10. PRAVASTATIN SODIUM [Concomitant]
     Active Substance: PRAVASTATIN SODIUM
     Indication: Product used for unknown indication
     Dosage: UNK
     Route: 065
  11. NEOVIS [CARBOHYDRATES NOS;CREATINE;MINERALS NOS;VITAMINS NOS] [Concomitant]
     Indication: Product used for unknown indication
     Dosage: UNK
     Route: 065
  12. MAXIDEX [Concomitant]
     Active Substance: DEXAMETHASONE
     Indication: Product used for unknown indication
     Dosage: UNK
     Route: 065
  13. HYALURONATE SODIUM\TREHALOSE [Concomitant]
     Active Substance: HYALURONATE SODIUM\TREHALOSE
     Indication: Product used for unknown indication
     Route: 065

REACTIONS (8)
  - Corneal thickening [Unknown]
  - Corneal disorder [Unknown]
  - Corneal pigmentation [Unknown]
  - Product prescribing issue [Unknown]
  - Inappropriate schedule of product administration [Unknown]
  - Incorrect product administration duration [Unknown]
  - Corneal opacity [Unknown]
  - Corneal epithelial wrinkling [Unknown]

NARRATIVE: CASE EVENT DATE: 20220101
